FAERS Safety Report 21148993 (Version 1)
Quarter: 2022Q3

REPORT INFORMATION
  Report Type: Report from Study
  Country: US (occurrence: US)
  Receive Date: 20220729
  Receipt Date: 20220729
  Transmission Date: 20221027
  Serious: Yes (Other)
  Sender: FDA-Public Use
  Company Number: US-China IPSEN SC-2022-21347

PATIENT
  Age: 62 Year
  Sex: Female

DRUGS (1)
  1. SOMATULINE DEPOT [Suspect]
     Active Substance: LANREOTIDE ACETATE
     Indication: Acromegaly
     Dosage: 120MG/0.5 ML
     Route: 058
     Dates: start: 2020

REACTIONS (12)
  - Pulmonary mass [Recovering/Resolving]
  - Hydrometra [Recovering/Resolving]
  - Uterine leiomyoma [Recovering/Resolving]
  - Memory impairment [Recovering/Resolving]
  - Injection site mass [Recovering/Resolving]
  - Pruritus [Recovering/Resolving]
  - Rash [Recovering/Resolving]
  - Somnolence [Recovering/Resolving]
  - Abdominal discomfort [Recovering/Resolving]
  - Mood swings [Recovering/Resolving]
  - Asthenia [Recovering/Resolving]
  - Skin mass [Recovering/Resolving]
